FAERS Safety Report 14746194 (Version 1)
Quarter: 2018Q2

REPORT INFORMATION
  Report Type: Spontaneous
  Country: IT (occurrence: IT)
  Receive Date: 20180411
  Receipt Date: 20180411
  Transmission Date: 20180711
  Serious: Yes (Hospitalization)
  Sender: FDA-Public Use
  Company Number: IT-PFIZER INC-2017198201

PATIENT
  Age: 83 Year
  Sex: Male

DRUGS (5)
  1. VASCOMAN [Concomitant]
     Active Substance: MANIDIPINE HYDROCHLORIDE
     Dosage: UNK
  2. TACHIPIRINA [Concomitant]
     Active Substance: ACETAMINOPHEN
     Dosage: UNK
  3. LEVOPRAID /00314301/ [Concomitant]
     Active Substance: SULPIRIDE
     Dosage: UNK
  4. XANAX [Suspect]
     Active Substance: ALPRAZOLAM
     Indication: ANXIETY
     Dosage: 1 DF, 1X/DAY
     Route: 048
  5. PEVARYL /00418501/ [Concomitant]
     Active Substance: ECONAZOLE NITRATE
     Dosage: UNK

REACTIONS (3)
  - Fall [Unknown]
  - Head injury [Unknown]
  - Asthenia [Unknown]

NARRATIVE: CASE EVENT DATE: 20170318
